FAERS Safety Report 9215857 (Version 1)
Quarter: 2013Q2

REPORT INFORMATION
  Report Type: Spontaneous
  Country: CN (occurrence: None)
  Receive Date: 20130403
  Receipt Date: 20130403
  Transmission Date: 20140414
  Serious: Yes (Hospitalization)
  Sender: FDA-Public Use
  Company Number: VAL_00806_2012

PATIENT
  Age: 73 Year
  Sex: Female

DRUGS (6)
  1. ROCALTROL [Suspect]
     Indication: OSTEOPOROSIS
     Route: 048
     Dates: start: 2004
  2. FOSAMAX [Suspect]
     Indication: OSTEOPOROSIS
     Route: 048
     Dates: start: 201111
  3. DEXAMETHASONE (DEXAMETHASONE) [Suspect]
     Indication: SUDDEN HEARING LOSS
     Route: 048
     Dates: start: 201106
  4. MI GU DA-ZOLEDRONIC ACID [Concomitant]
  5. ZOLEDRONIC ACID [Concomitant]
  6. MELATONIN [Concomitant]

REACTIONS (9)
  - Cerumen impaction [None]
  - Musculoskeletal pain [None]
  - Condition aggravated [None]
  - Abdominal pain upper [None]
  - Blood glucose increased [None]
  - Sudden hearing loss [None]
  - Hip fracture [None]
  - Groin pain [None]
  - No therapeutic response [None]
